FAERS Safety Report 8114123-7 (Version None)
Quarter: 2012Q1

REPORT INFORMATION
  Report Type: 
  Country: None (occurrence: None)
  Receive Date: 20120204
  Receipt Date: 20120126
  Transmission Date: 20120608
  Serious: Yes (Other)
  Sender: FDA-Public Use
  Company Number: US-ASTRAZENECA-2012SE05670

PATIENT
  Age: 53 Year
  Sex: Male
  Weight: 102.1 kg

DRUGS (4)
  1. NEXIUM [Suspect]
     Indication: HIATUS HERNIA
     Dosage: BID
     Route: 048
  2. CRESTOR [Suspect]
     Indication: BLOOD CHOLESTEROL ABNORMAL
     Route: 048
  3. BENICAR [Concomitant]
     Indication: BLOOD PRESSURE ABNORMAL
  4. NEXIUM [Suspect]
     Indication: GASTROOESOPHAGEAL REFLUX DISEASE
     Dosage: BID
     Route: 048

REACTIONS (5)
  - DYSPNOEA [None]
  - OFF LABEL USE [None]
  - ASPIRATION [None]
  - DRUG DOSE OMISSION [None]
  - LOSS OF CONSCIOUSNESS [None]
